FAERS Safety Report 11132172 (Version 2)
Quarter: 2015Q2

REPORT INFORMATION
  Report Type: Report from Study
  Country: US (occurrence: US)
  Receive Date: 20150522
  Receipt Date: 20150609
  Transmission Date: 20150821
  Serious: Yes (Hospitalization)
  Sender: FDA-Public Use
  Company Number: US-ABBVIE-15K-163-1376405-00

PATIENT
  Age: 40 Year
  Sex: Female
  Weight: 102.15 kg

DRUGS (1)
  1. HUMIRA [Suspect]
     Active Substance: ADALIMUMAB
     Indication: RHEUMATOID ARTHRITIS
     Dosage: 1 INJECTION
     Route: 065
     Dates: start: 20150403, end: 20150403

REACTIONS (10)
  - Infection [Recovering/Resolving]
  - Conjunctivitis [Unknown]
  - Bronchitis [Unknown]
  - Systemic lupus erythematosus [Not Recovered/Not Resolved]
  - Sputum discoloured [Unknown]
  - Pleurisy [Recovering/Resolving]
  - Thrombosis [Recovering/Resolving]
  - Hospitalisation [Unknown]
  - Dizziness [Unknown]
  - White blood cell count decreased [Unknown]

NARRATIVE: CASE EVENT DATE: 2015
